FAERS Safety Report 9272097 (Version 2)
Quarter: 2013Q3

REPORT INFORMATION
  Report Type: Spontaneous
  Country: DK (occurrence: FR)
  Receive Date: 20130506
  Receipt Date: 20130801
  Transmission Date: 20140515
  Serious: Yes (Hospitalization)
  Sender: FDA-Public Use
  Company Number: FR-FRI-1000044933

PATIENT
  Age: 66 Year
  Sex: Female

DRUGS (1)
  1. ESCITALOPRAM [Suspect]
     Indication: DEPRESSION
     Dosage: 1 DF
     Route: 048
     Dates: start: 20130418, end: 20130421

REACTIONS (2)
  - Nausea [Unknown]
  - Vomiting [Unknown]
